FAERS Safety Report 8282134-7 (Version None)
Quarter: 2012Q2

REPORT INFORMATION
  Report Type: 
  Country: None (occurrence: None)
  Receive Date: 20120413
  Receipt Date: 20120403
  Transmission Date: 20120825
  Serious: No
  Sender: FDA-Public Use
  Company Number: US-B.I. PHARMACEUTICALS,INC./RIDGEFIELD-2012-BP-06232BP

PATIENT
  Sex: Female

DRUGS (15)
  1. SPIRIVA [Suspect]
     Indication: CHRONIC OBSTRUCTIVE PULMONARY DISEASE
     Dosage: 18 MCG
     Route: 055
     Dates: start: 20100101
  2. PROVENTIL [Concomitant]
     Route: 055
  3. MULTI-VITAMIN [Concomitant]
     Indication: SUPPLEMENTATION THERAPY
     Route: 048
  4. SIMVASTATIN [Concomitant]
     Indication: BLOOD CHOLESTEROL INCREASED
     Dosage: 40 MG
     Route: 048
  5. FLEXERIL [Concomitant]
     Indication: BACK PAIN
     Dosage: 20 MG
     Route: 048
  6. MELOXICAM [Concomitant]
     Indication: BACK PAIN
     Route: 048
  7. NIFEDIPINE [Concomitant]
     Indication: HYPERTENSION
     Route: 048
  8. LANTUS [Concomitant]
     Indication: DIABETES MELLITUS
     Dosage: 34 U
     Route: 058
  9. QUINAPRIL [Concomitant]
     Indication: HYPERTENSION
     Dosage: 80 MG
     Route: 048
  10. HYDROCHLOROTHIAZIDE [Concomitant]
     Indication: LYMPHOEDEMA
     Dosage: 25 MG
     Route: 048
  11. NOVOLOG [Concomitant]
     Indication: DIABETES MELLITUS
  12. SYMBICORT [Concomitant]
     Indication: CHRONIC OBSTRUCTIVE PULMONARY DISEASE
     Route: 055
  13. ZETIA [Concomitant]
     Indication: BLOOD CHOLESTEROL INCREASED
     Dosage: 10 MG
     Route: 048
  14. FAMOTIDINE [Concomitant]
     Indication: GASTROOESOPHAGEAL REFLUX DISEASE
     Route: 048
  15. FLUOXETINE [Concomitant]
     Indication: DEPRESSION
     Dosage: 20 MG
     Route: 048

REACTIONS (2)
  - ERYTHEMA [None]
  - RASH [None]
